FAERS Safety Report 11156337 (Version 1)
Quarter: 2015Q2

REPORT INFORMATION
  Report Type: Spontaneous
  Country: US (occurrence: US)
  Receive Date: 20150602
  Receipt Date: 20150602
  Transmission Date: 20150821
  Serious: No
  Sender: FDA-Public Use
  Company Number: US-ASTRAZENECA-2015SE44606

PATIENT
  Sex: Female
  Weight: 68 kg

DRUGS (3)
  1. OMEPRAZOLE. [Suspect]
     Active Substance: OMEPRAZOLE
     Indication: GASTROOESOPHAGEAL REFLUX DISEASE
     Route: 048
     Dates: start: 201405, end: 201406
  2. SYNTHROID [Concomitant]
     Active Substance: LEVOTHYROXINE SODIUM
     Indication: THYROID THERAPY
  3. NEXIUM [Suspect]
     Active Substance: ESOMEPRAZOLE MAGNESIUM
     Indication: GASTROOESOPHAGEAL REFLUX DISEASE
     Route: 048
     Dates: start: 201410, end: 201411

REACTIONS (16)
  - Dyspepsia [Unknown]
  - Photosensitivity reaction [Unknown]
  - Throat irritation [Unknown]
  - Feeling drunk [Unknown]
  - Asthenia [Unknown]
  - Disturbance in attention [Unknown]
  - Drug effect increased [Unknown]
  - Eyelid ptosis [Unknown]
  - Drug ineffective [Unknown]
  - Gastrooesophageal reflux disease [Unknown]
  - Blister [Unknown]
  - Intentional product misuse [Unknown]
  - Feeling abnormal [Unknown]
  - Drug intolerance [Unknown]
  - Thinking abnormal [Unknown]
  - Drug tolerance decreased [Unknown]
